FAERS Safety Report 12478319 (Version 1)
Quarter: 2016Q2

REPORT INFORMATION
  Report Type: Spontaneous
  Country: FR (occurrence: FR)
  Receive Date: 20160617
  Receipt Date: 20160617
  Transmission Date: 20160815
  Serious: Yes (Hospitalization)
  Sender: FDA-Public Use
  Company Number: FR-ASTRAZENECA-2016SE65429

PATIENT
  Age: 32666 Day
  Sex: Female

DRUGS (11)
  1. DIFFU K [Concomitant]
     Active Substance: POTASSIUM CHLORIDE
     Route: 048
  2. INEXIUM [Suspect]
     Active Substance: ESOMEPRAZOLE
     Route: 048
     Dates: end: 20160426
  3. FORLAX [Concomitant]
     Active Substance: POLYETHYLENE GLYCOL 4000
     Dosage: 1.0DF AS REQUIRED
     Route: 048
  4. MECIR [Concomitant]
     Active Substance: TAMSULOSIN HYDROCHLORIDE
     Route: 048
  5. IMOVANE [Concomitant]
     Active Substance: ZOPICLONE
     Dosage: 3.75 MG/D (IN THE EVENING BEFORE BEDTIME)
     Route: 048
  6. TERBUTALINE [Concomitant]
     Active Substance: TERBUTALINE
     Route: 055
  7. SERETIDE [Concomitant]
     Active Substance: FLUTICASONE PROPIONATE\SALMETEROL XINAFOATE
     Dosage: 500 MICROGGRAMME BID
  8. MONOTILDIEM SR [Concomitant]
     Route: 048
  9. FORTIMEL [Concomitant]
     Active Substance: DIETARY SUPPLEMENT
     Route: 048
  10. FRAXIPARINE [Concomitant]
     Active Substance: NADROPARIN CALCIUM
     Route: 058
  11. OXYGENOTHERAPY [Concomitant]
     Dosage: 3 LITER PER MINUTES AT REST

REACTIONS (3)
  - Hypoalbuminaemia [Unknown]
  - Confusional state [Recovering/Resolving]
  - Hyponatraemia [Recovering/Resolving]

NARRATIVE: CASE EVENT DATE: 20160425
